FAERS Safety Report 20461446 (Version 2)
Quarter: 2022Q1

REPORT INFORMATION
  Report Type: Spontaneous
  Country: US (occurrence: US)
  Receive Date: 20220211
  Receipt Date: 20220223
  Transmission Date: 20220424
  Serious: Yes (Other)
  Sender: FDA-Public Use
  Company Number: US-ASTELLAS-2022US005112

PATIENT
  Age: 84 Year
  Sex: Female

DRUGS (30)
  1. LEXISCAN [Suspect]
     Active Substance: REGADENOSON
     Indication: Scan myocardial perfusion
     Dosage: 0.08 MG/ML (0.4MG/5ML), TOTAL DOSE (STANDARD LEXISCAN SYRINGE DOSE)
     Route: 065
     Dates: start: 20220208, end: 20220208
  2. LEXISCAN [Suspect]
     Active Substance: REGADENOSON
     Indication: Scan myocardial perfusion
     Dosage: 0.08 MG/ML (0.4MG/5ML), TOTAL DOSE (STANDARD LEXISCAN SYRINGE DOSE)
     Route: 065
     Dates: start: 20220208, end: 20220208
  3. LEXISCAN [Suspect]
     Active Substance: REGADENOSON
     Indication: Scan myocardial perfusion
     Dosage: 0.08 MG/ML (0.4MG/5ML), TOTAL DOSE (STANDARD LEXISCAN SYRINGE DOSE)
     Route: 065
     Dates: start: 20220208, end: 20220208
  4. LEXISCAN [Suspect]
     Active Substance: REGADENOSON
     Indication: Scan myocardial perfusion
     Dosage: 0.08 MG/ML (0.4MG/5ML), TOTAL DOSE (STANDARD LEXISCAN SYRINGE DOSE)
     Route: 065
     Dates: start: 20220208, end: 20220208
  5. LEXISCAN [Suspect]
     Active Substance: REGADENOSON
     Indication: Chest pain
  6. LEXISCAN [Suspect]
     Active Substance: REGADENOSON
     Indication: Chest pain
  7. LEXISCAN [Suspect]
     Active Substance: REGADENOSON
     Indication: Chest pain
  8. LEXISCAN [Suspect]
     Active Substance: REGADENOSON
     Indication: Chest pain
  9. LEXISCAN [Suspect]
     Active Substance: REGADENOSON
     Indication: Electrocardiogram
  10. LEXISCAN [Suspect]
     Active Substance: REGADENOSON
     Indication: Electrocardiogram
  11. LEXISCAN [Suspect]
     Active Substance: REGADENOSON
     Indication: Electrocardiogram
  12. LEXISCAN [Suspect]
     Active Substance: REGADENOSON
     Indication: Electrocardiogram
  13. AMOXICILLIN AND CLAVULANATE POTASSIUM [Concomitant]
     Active Substance: AMOXICILLIN\CLAVULANATE POTASSIUM
     Indication: Product used for unknown indication
     Dosage: 1 DF, EVERY 12 HOURS (AMOXICILLIN 875 MG-POTASSIUM CLAVULANATE 125 MG) FOR 10 DAYS
     Route: 048
  14. ASPIRIN [Concomitant]
     Active Substance: ASPIRIN
     Indication: Product used for unknown indication
     Route: 048
  15. CLONIDINE HYDROCHLORIDE [Concomitant]
     Active Substance: CLONIDINE HYDROCHLORIDE
     Indication: Blood pressure increased
     Dosage: 0.1 MG, ONCE DAILY AS NEEDED IF BP IS } 160
     Route: 065
  16. CLOPIDOGREL [Concomitant]
     Active Substance: CLOPIDOGREL BISULFATE
     Indication: Product used for unknown indication
     Route: 048
  17. CYCLOBENZAPRINE [Concomitant]
     Active Substance: CYCLOBENZAPRINE
     Indication: Muscle spasms
     Dosage: 10 MG, EVERY 8 HOURS AS NEEDED
     Route: 048
  18. GABAPENTIN [Concomitant]
     Active Substance: GABAPENTIN
     Indication: Product used for unknown indication
     Route: 048
  19. ACETAMINOPHEN\HYDROCODONE [Concomitant]
     Active Substance: ACETAMINOPHEN\HYDROCODONE
     Indication: Product used for unknown indication
     Dosage: 1 DF, 4 TIMES DAILY (HYDROCODONE 10 MG - ACETAMINOPHEN 325 MG)
     Route: 048
  20. MAGNESIUM [Concomitant]
     Active Substance: MAGNESIUM
     Indication: Product used for unknown indication
     Route: 048
  21. METHOTREXATE SODIUM [Concomitant]
     Active Substance: METHOTREXATE SODIUM
     Indication: Product used for unknown indication
     Dosage: 0.9 ML (25 MG/ML), ONCE WEEKLY AS DIRECTED
     Route: 030
  22. METHYLCOBALAMIN [Concomitant]
     Active Substance: METHYLCOBALAMIN
     Indication: Product used for unknown indication
     Dosage: 1 MG/ML (1 ML) (1000 MCG/ML), ONCE WEEKLY ROOM TEMP PROTECT FROM LIGHT
     Route: 030
  23. OMEPRAZOLE [Concomitant]
     Active Substance: OMEPRAZOLE
     Indication: Product used for unknown indication
     Route: 048
  24. ONDANSETRON HCL [Concomitant]
     Active Substance: ONDANSETRON HYDROCHLORIDE
     Indication: Nausea
     Dosage: 4 MG, TWICE DAILY AS NEEDED
     Route: 065
  25. PHENAZOPYRIDINE [Concomitant]
     Active Substance: PHENAZOPYRIDINE
     Indication: Product used for unknown indication
     Route: 048
  26. RAMIPRIL [Concomitant]
     Active Substance: RAMIPRIL
     Indication: Product used for unknown indication
     Route: 048
  27. VENTOLIN HFA [Concomitant]
     Active Substance: ALBUTEROL SULFATE
     Indication: Cough
     Dosage: 90 MCG/ACTUATION, INHALE 1 TO  PUFFS EVERY 4 6 HOURS AS NEEDED
     Route: 048
  28. VENTOLIN HFA [Concomitant]
     Active Substance: ALBUTEROL SULFATE
     Indication: Wheezing
  29. VITAMIN D3 [Concomitant]
     Active Substance: CHOLECALCIFEROL
     Indication: Product used for unknown indication
     Dosage: 50 ?G (2000 UNIT), UNKNOWN FREQ.
     Route: 048
  30. MENAQUINONE 6 [Concomitant]
     Active Substance: MENAQUINONE 6
     Indication: Product used for unknown indication
     Route: 048

REACTIONS (3)
  - Urinary retention [Recovering/Resolving]
  - Musculoskeletal pain [Recovering/Resolving]
  - Diarrhoea [Recovering/Resolving]

NARRATIVE: CASE EVENT DATE: 20220208
